FAERS Safety Report 22810305 (Version 3)
Quarter: 2025Q1

REPORT INFORMATION
  Report Type: Spontaneous
  Country: US (occurrence: US)
  Receive Date: 20230810
  Receipt Date: 20250114
  Transmission Date: 20250408
  Serious: No
  Sender: PFIZER
  Company Number: US-PFIZER INC-202300272024

PATIENT
  Age: 65 Year
  Sex: Female

DRUGS (26)
  1. XELJANZ [Suspect]
     Active Substance: TOFACITINIB CITRATE
     Dosage: 5 MG, 2X/DAY
     Route: 048
     Dates: start: 202210
  2. B COMPLEX FORMULA 1 [Concomitant]
  3. BYSTOLIC [Concomitant]
     Active Substance: NEBIVOLOL HYDROCHLORIDE
  4. CALCIUM 500(125 [Concomitant]
  5. DICYCLOMINE HYDROCHLORIDE [Concomitant]
     Active Substance: DICYCLOMINE HYDROCHLORIDE
  6. FOLIC ACID [Concomitant]
     Active Substance: FOLIC ACID
  7. HYDROXYCHLOROQUINE SULFATE [Concomitant]
     Active Substance: HYDROXYCHLOROQUINE SULFATE
  8. LYRICA [Concomitant]
     Active Substance: PREGABALIN
  9. POTASSIUM CHLORIDE [Concomitant]
     Active Substance: POTASSIUM CHLORIDE
  10. PREBIOTIC FIBER [Concomitant]
  11. PREDNISONE [Concomitant]
     Active Substance: PREDNISONE
  12. SPIRONOLACTONE [Concomitant]
     Active Substance: SPIRONOLACTONE
  13. SYNTHROID [Concomitant]
     Active Substance: LEVOTHYROXINE SODIUM
  14. TRAMADOL HCL ER [Concomitant]
  15. VIIBRYD [Concomitant]
     Active Substance: VILAZODONE HYDROCHLORIDE
  16. PROBIOTIC BLEND [Concomitant]
  17. VITAMIN D3 [Concomitant]
     Active Substance: CHOLECALCIFEROL
  18. PREGABALIN [Concomitant]
     Active Substance: PREGABALIN
  19. AMOXICILLIN\CLAVULANIC ACID [Concomitant]
     Active Substance: AMOXICILLIN\CLAVULANIC ACID
  20. LEVOTHYROXINE [Concomitant]
     Active Substance: LEVOTHYROXINE
  21. KLOR-CON [Concomitant]
     Active Substance: POTASSIUM CHLORIDE
  22. VILAZODONE [Concomitant]
     Active Substance: VILAZODONE
  23. NEBIVOLOL [Concomitant]
     Active Substance: NEBIVOLOL
  24. DEXLANSOPRAZOLE [Concomitant]
     Active Substance: DEXLANSOPRAZOLE
  25. OZEMPIC [Concomitant]
     Active Substance: SEMAGLUTIDE
  26. RINVOQ [Concomitant]
     Active Substance: UPADACITINIB

REACTIONS (3)
  - Headache [Recovering/Resolving]
  - Blood creatinine increased [Not Recovered/Not Resolved]
  - Tooth infection [Recovered/Resolved]

NARRATIVE: CASE EVENT DATE: 20230808
